FAERS Safety Report 11469705 (Version 1)
Quarter: 2015Q3

REPORT INFORMATION
  Report Type: Spontaneous
  Country: US (occurrence: US)
  Receive Date: 20150908
  Receipt Date: 20150908
  Transmission Date: 20151125
  Serious: No
  Sender: FDA-Public Use
  Company Number: US-JNJFOC-20150819852

PATIENT
  Age: 74 Year
  Sex: Female
  Weight: 46.27 kg

DRUGS (2)
  1. ZYRTEC 10MG IR TABLET [Suspect]
     Active Substance: CETIRIZINE HYDROCHLORIDE
     Indication: UPPER-AIRWAY COUGH SYNDROME
     Dosage: HALF TABLET 1X
     Route: 048
     Dates: start: 20150824
  2. ZYRTEC 10MG IR TABLET [Suspect]
     Active Substance: CETIRIZINE HYDROCHLORIDE
     Indication: MULTIPLE ALLERGIES
     Dosage: HALF TABLET 1X
     Route: 048
     Dates: start: 20150824

REACTIONS (2)
  - Wrong patient received medication [Unknown]
  - Incorrect dose administered [Unknown]
